FAERS Safety Report 11334283 (Version 2)
Quarter: 2015Q3

REPORT INFORMATION
  Report Type: Report from Study
  Country: US (occurrence: US)
  Receive Date: 20150803
  Receipt Date: 20150908
  Transmission Date: 20151125
  Serious: Yes (Other)
  Sender: FDA-Public Use
  Company Number: US-AMGEN-USASL2015077761

PATIENT
  Age: 59 Year
  Sex: Male
  Weight: 69.39 kg

DRUGS (1)
  1. ARANESP [Suspect]
     Active Substance: DARBEPOETIN ALFA
     Indication: ANAEMIA
     Dosage: 500 MUG, UNK
     Route: 065

REACTIONS (19)
  - Gastrooesophageal reflux disease [Unknown]
  - Herpes zoster [Unknown]
  - Erythema [Unknown]
  - Diarrhoea [Recovering/Resolving]
  - Back pain [Unknown]
  - Weight decreased [Unknown]
  - Tooth abscess [Recovered/Resolved]
  - Thrombocytopenia [Unknown]
  - Palpitations [Unknown]
  - Lumbar spinal stenosis [Unknown]
  - Medication error [Unknown]
  - Plasma cell myeloma [Unknown]
  - Tooth disorder [Unknown]
  - Decreased appetite [Recovering/Resolving]
  - Feeling abnormal [Unknown]
  - Induration [Unknown]
  - Anaemia [Unknown]
  - No therapeutic response [Unknown]
  - Hip fracture [Unknown]

NARRATIVE: CASE EVENT DATE: 20100610
